FAERS Safety Report 9572981 (Version 1)
Quarter: 2013Q4

REPORT INFORMATION
  Report Type: Spontaneous
  Country: US (occurrence: US)
  Receive Date: 20131001
  Receipt Date: 20131001
  Transmission Date: 20140711
  Serious: No
  Sender: FDA-Public Use
  Company Number: US-BIOGENIDEC-2013BI069380

PATIENT
  Age: 72 Year
  Sex: Female

DRUGS (3)
  1. TECFIDERA [Suspect]
     Indication: MULTIPLE SCLEROSIS
     Dates: start: 20130612
  2. CELEXA [Concomitant]
     Dates: start: 20130712
  3. FLAXSEED OIL [Concomitant]
     Dates: start: 20130712

REACTIONS (3)
  - Arthritis [Unknown]
  - Abdominal pain upper [Unknown]
  - Fatigue [Unknown]
